FAERS Safety Report 7656322-4 (Version None)
Quarter: 2011Q3

REPORT INFORMATION
  Report Type: 
  Country: None (occurrence: None)
  Receive Date: 20110804
  Receipt Date: 20110722
  Transmission Date: 20111222
  Serious: Yes (Hospitalization)
  Sender: FDA-Public Use
  Company Number: RU-SANOFI-AVENTIS-2011SA048235

PATIENT
  Age: 88 Year
  Sex: Female
  Weight: 75 kg

DRUGS (7)
  1. NORMODIPIN [Concomitant]
     Route: 065
  2. WARFARIN SODIUM [Concomitant]
     Route: 065
  3. SIMVASTATIN [Concomitant]
     Route: 065
  4. DRONEDARONE HCL [Suspect]
     Indication: ATRIAL FIBRILLATION
     Route: 048
     Dates: start: 20101118, end: 20110708
  5. ENALAPRIL MALEATE [Concomitant]
     Route: 065
  6. ATENOLOL [Concomitant]
     Route: 065
  7. THIAZIDES [Concomitant]
     Route: 065

REACTIONS (1)
  - HYPERTENSION [None]
